FAERS Safety Report 5903070-4 (Version None)
Quarter: 2008Q3

REPORT INFORMATION
  Report Type: 
  Country: None (occurrence: None)
  Receive Date: 20080926
  Receipt Date: 20080918
  Transmission Date: 20090109
  Serious: Yes (Hospitalization)
  Sender: FDA-Public Use
  Company Number: TOR 2008-0034

PATIENT
  Sex: Female

DRUGS (3)
  1. FARESTON [Suspect]
     Indication: BREAST CANCER
     Dosage: 40 MG, ORAL
     Route: 048
     Dates: start: 20051101, end: 20080717
  2. RESPOL (TAMOXIFEN) [Suspect]
     Indication: BREAST CANCER
     Dosage: 20 MG, ORAL
     Route: 048
     Dates: start: 20030908, end: 20050926
  3. AROMASIN [Concomitant]

REACTIONS (5)
  - ENDOMETRIAL CANCER STAGE III [None]
  - ENDOMETRIAL HYPERPLASIA [None]
  - ENDOMETRIOSIS [None]
  - RASH [None]
  - UTERINE LEIOMYOMA [None]
